FAERS Safety Report 5201680-3 (Version None)
Quarter: 2007Q1

REPORT INFORMATION
  Report Type: 
  Country: None (occurrence: None)
  Receive Date: 20070104
  Receipt Date: 20061228
  Transmission Date: 20070707
  Serious: Yes (Other)
  Sender: FDA-Public Use
  Company Number: 33041

PATIENT

DRUGS (2)
  1. IBUPROFEN [Suspect]
     Indication: SINUSITIS
     Dosage: 400 MG/Q4-6 HOURS/ORAL
     Route: 048
     Dates: start: 20061221
  2. UNSPECIFIED COLD MEDICATIONS [Concomitant]

REACTIONS (2)
  - CONVULSION [None]
  - PARAESTHESIA [None]
